FAERS Safety Report 4363079-1 (Version None)
Quarter: 2004Q2

REPORT INFORMATION
  Report Type: 
  Country: None (occurrence: None)
  Receive Date: 20040519
  Receipt Date: 20040511
  Transmission Date: 20050107
  Serious: Yes (Hospitalization)
  Sender: FDA-Public Use
  Company Number: 2004027832

PATIENT
  Age: 70 Year
  Sex: Female

DRUGS (3)
  1. LIPITOR [Suspect]
     Indication: DYSLIPIDAEMIA
     Dosage: 10 MG (DAILY), ORAL
     Route: 048
     Dates: start: 20020401
  2. FLUOXETINE [Concomitant]
  3. OMEPRAZOLE [Concomitant]

REACTIONS (3)
  - LIMB INJURY [None]
  - PARAESTHESIA [None]
  - TENDON RUPTURE [None]
